FAERS Safety Report 5075462-X (Version None)
Quarter: 2006Q3

REPORT INFORMATION
  Report Type: 
  Country: None (occurrence: None)
  Receive Date: 20060809
  Receipt Date: 20060731
  Transmission Date: 20061208
  Serious: Yes (Other)
  Sender: FDA-Public Use
  Company Number: PHFR2006GB02387

PATIENT
  Sex: Male

DRUGS (1)
  1. NEORAL [Suspect]
     Indication: PSORIASIS
     Route: 065

REACTIONS (1)
  - DEAFNESS [None]
